FAERS Safety Report 16176079 (Version 2)
Quarter: 2023Q2

REPORT INFORMATION
  Report Type: Spontaneous
  Country: FR (occurrence: FR)
  Receive Date: 20190409
  Receipt Date: 20230501
  Transmission Date: 20230721
  Serious: Yes (Hospitalization)
  Sender: FDA-Public Use
  Company Number: None

PATIENT
  Age: 80 Year
  Sex: Male
  Weight: 115 kg

DRUGS (4)
  1. AMIODARONE [Suspect]
     Active Substance: AMIODARONE
     Indication: Arrhythmia
     Dosage: UNK
     Route: 048
     Dates: start: 20180813, end: 20180826
  2. BISOPROLOL [Suspect]
     Active Substance: BISOPROLOL
     Indication: Cardiac failure
     Dosage: UNK
     Route: 048
     Dates: start: 20180813, end: 20180824
  3. DIGOXIN [Suspect]
     Active Substance: DIGOXIN
     Indication: Arrhythmia
     Dosage: 0.5 DOSAGE FORM, QD
     Route: 042
     Dates: start: 20180811, end: 20180826
  4. AUGMENTIN [Suspect]
     Active Substance: AMOXICILLIN\CLAVULANATE POTASSIUM
     Indication: Lung disorder
     Dosage: UNK
     Route: 048
     Dates: start: 20180811, end: 20180826

REACTIONS (4)
  - Hyperleukocytosis [Recovered/Resolved]
  - Rash pustular [Not Recovered/Not Resolved]
  - Acute generalised exanthematous pustulosis [Not Recovered/Not Resolved]
  - Erythema [Not Recovered/Not Resolved]

NARRATIVE: CASE EVENT DATE: 20180801
